FAERS Safety Report 4735727-5 (Version None)
Quarter: 2005Q3

REPORT INFORMATION
  Report Type: 
  Country: None (occurrence: None)
  Receive Date: 20050803
  Receipt Date: 20050711
  Transmission Date: 20060218
  Serious: Yes (Disabling, Other)
  Sender: FDA-Public Use
  Company Number: USA0507102438

PATIENT
  Age: 21 Year
  Sex: Male

DRUGS (4)
  1. HUMALOG [Suspect]
     Indication: DIABETES MELLITUS
  2. HUMULIN U [Suspect]
     Indication: DIABETES MELLITUS
  3. HUMULIN N [Suspect]
     Indication: DIABETES MELLITUS
  4. HUMULIN 70/30 [Suspect]
     Indication: DIABETES MELLITUS

REACTIONS (9)
  - ARTHRITIS INFECTIVE [None]
  - BONE INFECTION [None]
  - DIARRHOEA [None]
  - HYPERKERATOSIS [None]
  - HYPOTENSION [None]
  - LIMB INJURY [None]
  - LOCALISED INFECTION [None]
  - NEUROPATHY [None]
  - SKIN DISORDER [None]
